FAERS Safety Report 14106672 (Version 2)
Quarter: 2017Q4

REPORT INFORMATION
  Report Type: Report from Study
  Country: AU (occurrence: AU)
  Receive Date: 20171019
  Receipt Date: 20171122
  Transmission Date: 20180321
  Serious: Yes (Death, Hospitalization)
  Sender: FDA-Public Use
  Company Number: AU-AMGEN-AUSSL2017158154

PATIENT
  Age: 63 Year
  Sex: Male
  Weight: 97.5 kg

DRUGS (1)
  1. KYPROLIS [Suspect]
     Active Substance: CARFILZOMIB
     Indication: PLASMA CELL MYELOMA
     Dosage: 123 MG, AS PER PROTOCOL
     Route: 042
     Dates: start: 20170728, end: 20170922

REACTIONS (3)
  - Respiratory tract infection [Fatal]
  - Plasma cell myeloma recurrent [Fatal]
  - Chronic obstructive pulmonary disease [Fatal]

NARRATIVE: CASE EVENT DATE: 2017
